FAERS Safety Report 23347972 (Version 1)
Quarter: 2023Q4

REPORT INFORMATION
  Report Type: Spontaneous
  Country: US (occurrence: None)
  Receive Date: 20231228
  Receipt Date: 20231228
  Transmission Date: 20240110
  Serious: Yes (Other)
  Sender: FDA-Public Use
  Company Number: None

PATIENT
  Age: 57 Year
  Sex: Female
  Weight: 70.5 kg

DRUGS (14)
  1. INFED [Suspect]
     Active Substance: IRON DEXTRAN
     Indication: Iron deficiency anaemia
     Dosage: OTHER FREQUENCY : ONCE;?
     Route: 042
     Dates: start: 20231227, end: 20231227
  2. Amitriptyline 10 mg PO daily [Concomitant]
  3. Amlodipine 2.5 mg PO daily [Concomitant]
  4. Atenolol 50 mg PO daily [Concomitant]
  5. Baclofen 10 mg - one tab AM, 2 tabs afternoon and PM [Concomitant]
  6. Cyclobenzaprine 5 mg PO TID [Concomitant]
  7. Folic Acid 1 mg PO daily [Concomitant]
  8. Gabapentin 200 mg PO BID [Concomitant]
  9. Gabapentin 600 mg PO every night [Concomitant]
  10. Lactulose 10 gram PO daily [Concomitant]
  11. Losartan 50 mg PO daily [Concomitant]
  12. Pantoprazole 40 mg PO BID [Concomitant]
  13. Sucralfate 1 gram PO TID [Concomitant]
  14. Triamterene 37.5 mg-hydrochlorothiazide 25 mg PO daily [Concomitant]

REACTIONS (6)
  - Abdominal pain [None]
  - Flushing [None]
  - Throat tightness [None]
  - Back pain [None]
  - Hypoaesthesia [None]
  - Infusion related reaction [None]

NARRATIVE: CASE EVENT DATE: 20231227
